FAERS Safety Report 5336323-1 (Version None)
Quarter: 2007Q2

REPORT INFORMATION
  Report Type: 
  Country: None (occurrence: None)
  Receive Date: 20070523
  Receipt Date: 20070509
  Transmission Date: 20071010
  Serious: Yes (Other)
  Sender: FDA-Public Use
  Company Number: DSA_29671_2007

PATIENT
  Sex: Female

DRUGS (6)
  1. DILTIAZEM HYDROCHLORIDE [Suspect]
     Indication: ATRIAL FIBRILLATION
     Dosage: (360 MG QD ORAL)
     Route: 048
  2. DILTIAZEM HYDROCHLORIDE [Suspect]
     Indication: HYPERTENSION
     Dosage: (360 MG QD ORAL)
     Route: 048
  3. DILTIAZEM HYDROCHLORIDE [Suspect]
     Indication: ATRIAL FIBRILLATION
     Dosage: (300 MG QD ORAL)
     Route: 048
     Dates: start: 20050601
  4. DILTIAZEM HYDROCHLORIDE [Suspect]
     Indication: HYPERTENSION
     Dosage: (300 MG QD ORAL)
     Route: 048
     Dates: start: 20050601
  5. DARVOCET-N 100 [Concomitant]
  6. MAG-TAB [Concomitant]

REACTIONS (6)
  - CONDITION AGGRAVATED [None]
  - DIARRHOEA [None]
  - IRRITABLE BOWEL SYNDROME [None]
  - MEDICATION RESIDUE [None]
  - PHARMACEUTICAL PRODUCT COMPLAINT [None]
  - SICK SINUS SYNDROME [None]
